FAERS Safety Report 18976006 (Version 1)
Quarter: 2021Q1

REPORT INFORMATION
  Report Type: Report from Study
  Country: DE (occurrence: DE)
  Receive Date: 20210305
  Receipt Date: 20210305
  Transmission Date: 20210420
  Serious: Yes (Congenital Anomaly, Other)
  Sender: FDA-Public Use
  Company Number: DE-AUROBINDO-AUR-APL-2018-020271

PATIENT
  Sex: Male
  Weight: 2.9 kg

DRUGS (10)
  1. IBUPROFEN. [Suspect]
     Active Substance: IBUPROFEN
     Indication: PRODUCT USED FOR UNKNOWN INDICATION
     Dosage: UNK, FROM 0 TO 27 GESTATIONAL WEEK
     Route: 064
  2. PARACETAMOL [Suspect]
     Active Substance: ACETAMINOPHEN
     Dosage: GESTATIONAL WEEK OF EXPOSURE? 17?21
     Route: 064
  3. LEVOTHYROXINE. [Suspect]
     Active Substance: LEVOTHYROXINE
     Indication: PRODUCT USED FOR UNKNOWN INDICATION
     Dosage: UNK, FROM 0 TO 27 GESTATIONAL WEEK
     Route: 064
  4. PARACETAMOL [Suspect]
     Active Substance: ACETAMINOPHEN
     Indication: PRODUCT USED FOR UNKNOWN INDICATION
     Dosage: UNK
     Route: 064
  5. OMEPRAZOLE. [Suspect]
     Active Substance: OMEPRAZOLE
     Indication: PRODUCT USED FOR UNKNOWN INDICATION
     Dosage: UNK, FROM 0 TO 4 GESTATIONAL WEEK
     Route: 064
  6. DICLOFENAC [Suspect]
     Active Substance: DICLOFENAC
     Indication: PRODUCT USED FOR UNKNOWN INDICATION
     Dosage: 100 MILLIGRAM, PRN AS NECESSARY GESTSTIONAL WEEK OF EXPOSURE 0?19 + 4
     Route: 064
  7. LYNESTRENOL [Suspect]
     Active Substance: LYNESTRENOL
     Indication: PRODUCT USED FOR UNKNOWN INDICATION
     Dosage: UNK, FROM 0 TO 4 GESTATIONAL WEEK
     Route: 064
  8. HYDROXYCHLOROQUINE [Suspect]
     Active Substance: HYDROXYCHLOROQUINE
     Indication: PRODUCT USED FOR UNKNOWN INDICATION
     Dosage: UNK, UNK
     Route: 064
  9. HYDROXYCHLOROQUINE [Suspect]
     Active Substance: HYDROXYCHLOROQUINE
     Dosage: GESTATIONAL WEEK OF EXPOSURE? 0?13
     Route: 064
  10. SULFASALAZINE. [Suspect]
     Active Substance: SULFASALAZINE
     Indication: PRODUCT USED FOR UNKNOWN INDICATION
     Dosage: UNK (GESTATIONAL WEEK OF EXPOSURE? 0?17 )
     Route: 064

REACTIONS (11)
  - Microcephaly [Unknown]
  - Atrial septal defect [Unknown]
  - Splenomegaly [Unknown]
  - Cerebral atrophy congenital [Unknown]
  - Medium-chain acyl-coenzyme A dehydrogenase deficiency [Unknown]
  - Fragile X syndrome [Unknown]
  - Foetal exposure during pregnancy [Unknown]
  - Pyloric stenosis [Unknown]
  - Cryopyrin associated periodic syndrome [Unknown]
  - Pupils unequal [Unknown]
  - Trisomy 8 [Unknown]
